FAERS Safety Report 4773127-2 (Version None)
Quarter: 2005Q3

REPORT INFORMATION
  Report Type: 
  Country: None (occurrence: None)
  Receive Date: 20050919
  Receipt Date: 20050907
  Transmission Date: 20060218
  Serious: Yes (Other)
  Sender: FDA-Public Use
  Company Number: 2005124769

PATIENT
  Age: 44 Year
  Sex: Male
  Weight: 93.441 kg

DRUGS (2)
  1. LISTERINE (MENTHOL, METHYL SALICYLATE, EUCALYPTOL, THYMOL) [Suspect]
     Indication: FEELING DRUNK
     Dosage: 1/2 BOTTLE ONCE DAILY, ORAL
     Route: 048
     Dates: start: 20020101, end: 20020101
  2. ESCITALOPRAM OXALATE [Concomitant]

REACTIONS (3)
  - ALCOHOL POISONING [None]
  - DIARRHOEA [None]
  - INTENTIONAL MISUSE [None]
